FAERS Safety Report 5354887-9 (Version None)
Quarter: 2007Q2

REPORT INFORMATION
  Report Type: 
  Country: None (occurrence: None)
  Receive Date: 20070611
  Receipt Date: 20070602
  Transmission Date: 20071010
  Serious: Yes (Hospitalization, Other)
  Sender: FDA-Public Use
  Company Number: 2007SP011035

PATIENT
  Sex: Female

DRUGS (2)
  1. PEG-INTRON [Suspect]
     Indication: HEPATITIS C
     Dosage: ; SC
     Route: 058
     Dates: start: 20050101
  2. UNKNOWN PILLS [Suspect]
     Indication: HEPATITIS C
     Dates: start: 20050101

REACTIONS (9)
  - ABDOMINAL DISTENSION [None]
  - BLOOD PRESSURE INCREASED [None]
  - CONVULSION [None]
  - COUGH [None]
  - INSOMNIA [None]
  - MYALGIA [None]
  - RESPIRATORY TRACT CONGESTION [None]
  - RETCHING [None]
  - VOMITING [None]
